FAERS Safety Report 12099386 (Version 1)
Quarter: 2016Q1

REPORT INFORMATION
  Report Type: Spontaneous
  Country: US (occurrence: US)
  Receive Date: 20160222
  Receipt Date: 20160222
  Transmission Date: 20160526
  Serious: No
  Sender: FDA-Public Use
  Company Number: US-TEVA-599891USA

PATIENT
  Age: 66 Year
  Sex: Male
  Weight: 90.8 kg

DRUGS (4)
  1. ANBESOL REGULAR STRENGTH GEL [Suspect]
     Active Substance: BENZOCAINE
     Indication: TOOTHACHE
     Dosage: 20% GEL
     Dates: start: 20150803, end: 20150805
  2. ANBESOL REGULAR STRENGTH GEL [Suspect]
     Active Substance: BENZOCAINE
     Indication: GINGIVAL PAIN
  3. HYDROCODONE [Suspect]
     Active Substance: HYDROCODONE
     Indication: PAIN
     Dosage: 5/325, ONE TABLET EVERY 4-6 HOURS
  4. AMOXICILLIN. [Suspect]
     Active Substance: AMOXICILLIN
     Indication: PRODUCT USED FOR UNKNOWN INDICATION
     Dosage: 1500 MILLIGRAM DAILY;
     Route: 048

REACTIONS (4)
  - Eye swelling [Unknown]
  - Lip swelling [Unknown]
  - Swelling face [Unknown]
  - Drug ineffective [Unknown]

NARRATIVE: CASE EVENT DATE: 201508
